FAERS Safety Report 8760006 (Version 5)
Quarter: 2014Q2

REPORT INFORMATION
  Report Type: Spontaneous
  Country: US (occurrence: US)
  Receive Date: 20120829
  Receipt Date: 20130730
  Transmission Date: 20141212
  Serious: Yes (Hospitalization, Other)
  Sender: FDA-Public Use
  Company Number: US-009507513-1201USA00228

PATIENT
  Sex: Female
  Weight: 70.3 kg

DRUGS (7)
  1. FOSAMAX [Suspect]
     Indication: OSTEOPOROSIS
     Dosage: 10 MG, UNK
     Route: 048
     Dates: start: 1998, end: 20080301
  2. FOSAMAX [Suspect]
     Dosage: 70 MG, UNK
     Route: 048
     Dates: start: 1998, end: 20080301
  3. FOSAMAX [Suspect]
     Indication: OSTEOPOROSIS
     Dosage: 70 MG, UNK
     Route: 048
     Dates: start: 20080301, end: 201003
  4. CALCIUM (UNSPECIFIED) [Concomitant]
  5. VITAMIN D (UNSPECIFIED) [Concomitant]
  6. ALENDRONATE SODIUM [Suspect]
     Indication: OSTEOPOROSIS
     Dosage: 70 MG, UNK
     Route: 048
     Dates: start: 20080301
  7. ALENDRONATE SODIUM [Suspect]
     Dosage: 70 MG, UNK
     Route: 048
     Dates: start: 20100204

REACTIONS (36)
  - Femur fracture [Unknown]
  - Appendicectomy [Unknown]
  - Femoral neck fracture [Not Recovered/Not Resolved]
  - Open reduction of fracture [Unknown]
  - Femur fracture [Unknown]
  - Thyroidectomy [Unknown]
  - Hip arthroplasty [Unknown]
  - Osteoarthritis [Unknown]
  - Debridement [Unknown]
  - Hip arthroplasty [Unknown]
  - Open reduction of fracture [Unknown]
  - Osteonecrosis of jaw [Unknown]
  - Hypercholesterolaemia [Unknown]
  - Nasopharyngitis [Unknown]
  - Eye pruritus [Unknown]
  - Urinary tract infection [Unknown]
  - Fall [Unknown]
  - Arthritis [Unknown]
  - Ocular hyperaemia [Unknown]
  - Diverticulitis [Unknown]
  - Burning mouth syndrome [Unknown]
  - Dental alveolar anomaly [Unknown]
  - Hysterectomy [Unknown]
  - Drug intolerance [Unknown]
  - Spinal osteoarthritis [Unknown]
  - Exostosis [Unknown]
  - Fall [Unknown]
  - Diabetes mellitus [Unknown]
  - Joint effusion [Recovered/Resolved]
  - Patellofemoral pain syndrome [Unknown]
  - Synovial cyst [Unknown]
  - Pain in jaw [Unknown]
  - Pain in jaw [Recovered/Resolved]
  - Mouth ulceration [Unknown]
  - Arthralgia [Recovered/Resolved]
  - Back pain [Recovering/Resolving]
